FAERS Safety Report 5086164-8 (Version None)
Quarter: 2006Q3

REPORT INFORMATION
  Report Type: 
  Country: None (occurrence: None)
  Receive Date: 20060818
  Receipt Date: 20060807
  Transmission Date: 20061208
  Serious: Yes (Other)
  Sender: FDA-Public Use
  Company Number: 2006096770

PATIENT
  Sex: Female

DRUGS (2)
  1. DOXYCYCLINE [Suspect]
     Indication: BLIGHTED OVUM
     Dosage: 200 MG (100 MG, 2 IN 1 D); ORAL
     Route: 048
     Dates: start: 20051012, end: 20051019
  2. CO-DYDRAMOL (DIHYDROCODEINE BITARTRATE, PARACETAMOL) [Concomitant]

REACTIONS (1)
  - CONVULSION [None]
